FAERS Safety Report 23063741 (Version 1)
Quarter: 2023Q4

REPORT INFORMATION
  Report Type: Spontaneous
  Country: US (occurrence: US)
  Receive Date: 20231013
  Receipt Date: 20231013
  Transmission Date: 20240110
  Serious: No
  Sender: FDA-Public Use
  Company Number: US-NOVEN PHARMACEUTICALS, INC.-2023-NOV-US000840

PATIENT
  Age: 15 Year
  Sex: Female

DRUGS (3)
  1. XELSTRYM [Suspect]
     Active Substance: DEXTROAMPHETAMINE
     Indication: Attention deficit hyperactivity disorder
     Dosage: 18 MG, UNKNOWN
     Route: 062
     Dates: start: 20230720
  2. XELSTRYM [Suspect]
     Active Substance: DEXTROAMPHETAMINE
     Dosage: 13.5 MG + HALF OF 13.5 MG PATCH/9 HOURS, DAILY
     Route: 062
     Dates: start: 20230715
  3. XELSTRYM [Suspect]
     Active Substance: DEXTROAMPHETAMINE
     Dosage: 13.5 MG/9 HOURS, DAILY
     Route: 062
     Dates: start: 20230713, end: 20230714

REACTIONS (1)
  - Application site pain [Not Recovered/Not Resolved]

NARRATIVE: CASE EVENT DATE: 20230701
